FAERS Safety Report 4314692-9 (Version None)
Quarter: 2004Q1

REPORT INFORMATION
  Report Type: 
  Country: None (occurrence: None)
  Receive Date: 20040308
  Receipt Date: 20040226
  Transmission Date: 20041129
  Serious: Yes (Hospitalization, Disabling)
  Sender: FDA-Public Use
  Company Number: 2002AP04221

PATIENT
  Age: 84 Year
  Sex: Male
  Weight: 80 kg

DRUGS (17)
  1. IRESSA [Suspect]
     Indication: PROSTATE CANCER
     Dosage: 500 MG DAILY PO
     Route: 048
     Dates: start: 20020703, end: 20021030
  2. SELOKEEN [Concomitant]
  3. CEDOCARD-RETARD [Concomitant]
  4. ADALAT [Concomitant]
  5. LIPITOR [Concomitant]
  6. ASPIRIN ENTERIC COATED K.P. [Concomitant]
  7. NITROLINGUAL [Concomitant]
  8. COAPROVEL [Concomitant]
  9. TAVEGIL [Concomitant]
  10. IMODIUM ^JANSSEN^ [Concomitant]
  11. CALCIUM CHORIDE ^BIOTIKA^ [Concomitant]
  12. RED BLOOD CELLS [Concomitant]
  13. CO-TRIMOXAZOLE FORTE ^AL^ [Concomitant]
  14. FUROSEMIDE [Concomitant]
  15. GLUCOSE INFUSION [Concomitant]
  16. RINGERS SOLUTION [Concomitant]
  17. DICLOFENAC [Concomitant]

REACTIONS (6)
  - ANGINA PECTORIS [None]
  - ANOREXIA [None]
  - DEHYDRATION [None]
  - DIARRHOEA [None]
  - DYSPNOEA [None]
  - GASTRIC ULCER [None]
